FAERS Safety Report 6835353-8 (Version None)
Quarter: 2010Q3

REPORT INFORMATION
  Report Type: 
  Country: None (occurrence: None)
  Receive Date: 20100707
  Receipt Date: 20100617
  Transmission Date: 20110219
  Serious: Yes (Life-Threatening, Other)
  Sender: FDA-Public Use
  Company Number: 20100278

PATIENT
  Age: 41 Year
  Sex: Male

DRUGS (2)
  1. MANNITOL [Suspect]
     Indication: INTRACRANIAL PRESSURE INCREASED
  2. ANESTHESIA [Concomitant]

REACTIONS (8)
  - BLOOD SODIUM DECREASED [None]
  - CARDIAC ARREST [None]
  - CARDIAC DISORDER [None]
  - HYPERKALAEMIA [None]
  - HYPOCALCAEMIA [None]
  - HYPOKINESIA [None]
  - VENTRICULAR FIBRILLATION [None]
  - VENTRICULAR TACHYCARDIA [None]
